FAERS Safety Report 4280104-7 (Version None)
Quarter: 2004Q1

REPORT INFORMATION
  Report Type: 
  Country: None (occurrence: None)
  Receive Date: 20040126
  Receipt Date: 20040113
  Transmission Date: 20041129
  Serious: Yes (Hospitalization)
  Sender: FDA-Public Use
  Company Number: 2004002777

PATIENT
  Age: 74 Year
  Sex: Male
  Weight: 80.8 kg

DRUGS (3)
  1. AMLODIPINE [Suspect]
     Indication: HYPERTENSION
     Dosage: 5 MG (DAILY); ORAL
     Route: 048
     Dates: start: 20030913, end: 20031120
  2. ALL OTHER THERAPEUTIC PRODUCTS [Concomitant]
  3. BACTRIM (SULFAMETHOXAZLE, TRIMETHOPRIM) [Concomitant]

REACTIONS (2)
  - RENAL FAILURE [None]
  - RENAL TUBULAR NECROSIS [None]
